FAERS Safety Report 18984795 (Version 1)
Quarter: 2021Q1

REPORT INFORMATION
  Report Type: Spontaneous
  Country: CN (occurrence: CN)
  Receive Date: 20210309
  Receipt Date: 20210309
  Transmission Date: 20210420
  Serious: Yes (Other)
  Sender: FDA-Public Use
  Company Number: CN-009507513-2103CHN000923

PATIENT
  Age: 21 Year
  Sex: Female
  Weight: 40 kg

DRUGS (2)
  1. TIENAM [Suspect]
     Active Substance: CILASTATIN SODIUM\IMIPENEM
     Indication: PNEUMONIA
     Dosage: 500 MG, FOURTH A DAY (ALSO REPORTED AS Q6H)
     Route: 041
     Dates: start: 20201130, end: 20201221
  2. SULPERAZONE [Suspect]
     Active Substance: CEFOPERAZONE SODIUM\SULBACTAM SODIUM
     Indication: PNEUMONIA
     Dosage: 3 G, THREE TIMES A DAY (ALSO REPORTED AS Q8H)
     Route: 041
     Dates: start: 20201222, end: 20201226

REACTIONS (3)
  - Abdominal pain [Recovering/Resolving]
  - Diarrhoea [Recovering/Resolving]
  - Haematochezia [Recovering/Resolving]

NARRATIVE: CASE EVENT DATE: 20201224
